FAERS Safety Report 5759051-7 (Version None)
Quarter: 2008Q2

REPORT INFORMATION
  Report Type: 
  Country: None (occurrence: None)
  Receive Date: 20080604
  Receipt Date: 20080602
  Transmission Date: 20081010
  Serious: Yes (Hospitalization)
  Sender: FDA-Public Use
  Company Number: FR-WYE-G01621308

PATIENT
  Sex: Female

DRUGS (7)
  1. ADVIL [Suspect]
     Dosage: 400 AT 1200 MG PER DAY
     Route: 048
     Dates: start: 20071101, end: 20080227
  2. NOVORAPID [Concomitant]
     Dosage: UNKNOWN
     Route: 058
  3. NEXIUM [Concomitant]
     Dosage: UNKNOWN
  4. COZAAR [Concomitant]
     Dosage: UNKNOWN
     Route: 048
  5. TARDYFERON [Concomitant]
     Dosage: UNKNOWN
     Route: 048
  6. INSULATARD [Concomitant]
     Dosage: UNKNOWN
     Route: 058
  7. NEO-MERCAZOLE TAB [Concomitant]
     Dosage: UNKNOWN

REACTIONS (4)
  - DUODENAL ULCER [None]
  - DUODENITIS HAEMORRHAGIC [None]
  - GASTRITIS [None]
  - IRON DEFICIENCY ANAEMIA [None]
